FAERS Safety Report 5068922-9 (Version None)
Quarter: 2006Q3

REPORT INFORMATION
  Report Type: 
  Country: None (occurrence: None)
  Receive Date: 20060728
  Receipt Date: 20060713
  Transmission Date: 20061208
  Serious: Yes (Life-Threatening, Hospitalization)
  Sender: FDA-Public Use
  Company Number: GR200604001686

PATIENT
  Age: 76 Year
  Sex: Male
  Weight: 85 kg

DRUGS (3)
  1. PEMETREXED(PEMETREXED) VIAL [Suspect]
     Indication: NON-SMALL CELL LUNG CANCER
     Dosage: INTRAVENOUS
     Route: 042
     Dates: start: 20060308, end: 20060308
  2. FUCIDIN/SCH/ (FUSIDIC ACID) [Concomitant]
  3. ZOMETA [Concomitant]

REACTIONS (4)
  - ERYTHEMA MULTIFORME [None]
  - JAUNDICE [None]
  - NEUTROPENIA [None]
  - THROMBOCYTOPENIA [None]
